FAERS Safety Report 5339283-2 (Version None)
Quarter: 2007Q2

REPORT INFORMATION
  Report Type: 
  Country: None (occurrence: None)
  Receive Date: 20070525
  Receipt Date: 20070512
  Transmission Date: 20071010
  Serious: Yes (Hospitalization)
  Sender: FDA-Public Use
  Company Number: A-JP2007-15616

PATIENT
  Age: 46 Year
  Sex: Female

DRUGS (3)
  1. TRACLEER [Suspect]
     Indication: PULMONARY HYPERTENSION
     Dosage: 125 MG, BID, ORAL
     Route: 048
     Dates: end: 20070303
  2. EPOPROSTENOL SODIUM [Concomitant]
  3. OXYGEN (OXYGEN) [Concomitant]

REACTIONS (2)
  - MYALGIA [None]
  - THROMBOCYTOPENIA [None]
